FAERS Safety Report 4317446-2 (Version None)
Quarter: 2004Q1

REPORT INFORMATION
  Report Type: 
  Country: None (occurrence: None)
  Receive Date: 20040312
  Receipt Date: 20040301
  Transmission Date: 20041129
  Serious: Yes (Other)
  Sender: FDA-Public Use
  Company Number: 2004005890

PATIENT
  Age: 63 Year
  Sex: Female
  Weight: 63.5036 kg

DRUGS (7)
  1. PROCARDIA XL [Suspect]
     Indication: HYPERTENSION
     Dosage: 30 MG (DAILY), ORAL
     Route: 048
     Dates: start: 19850101
  2. LISINOPRIL [Suspect]
     Indication: HYPERTENSION
     Dosage: 20 MG (DAILY),
  3. PROPRANOLOL HCL [Suspect]
     Indication: HYPERTENSION
     Dosage: 20 MG (DAILY)
  4. METOPROLOL (METOPROLOL) [Suspect]
     Indication: HYPERTENSION
  5. LOSARTAN POTASSIUM (LOSARTAN POTASSIUM) [Suspect]
     Indication: HYPERTENSION
  6. HYDROCHLOROTHIAZIDE [Suspect]
     Indication: ILL-DEFINED DISORDER
     Dosage: 25 MG (DAILY)
  7. PROVELLA-14 (MEDROXYPROGESTERONE ACETATE, ESTROGENS CONJUGATED) [Concomitant]

REACTIONS (8)
  - BLOOD PRESSURE INCREASED [None]
  - CARDIOMEGALY [None]
  - CORONARY ARTERY DISEASE [None]
  - COUGH [None]
  - DRUG INEFFECTIVE [None]
  - FATIGUE [None]
  - SINUS BRADYCARDIA [None]
  - VENTRICULAR EXTRASYSTOLES [None]
